FAERS Safety Report 10227680 (Version 1)
Quarter: 2014Q2

REPORT INFORMATION
  Report Type: Spontaneous
  Country: US (occurrence: None)
  Receive Date: 20140609
  Receipt Date: 20140609
  Transmission Date: 20141212
  Serious: Yes (Hospitalization)
  Sender: FDA-Public Use
  Company Number: None

PATIENT
  Age: 67 Year
  Sex: Female
  Weight: 86.4 kg

DRUGS (9)
  1. SOFOSBUVIR [Suspect]
     Indication: HEPATITIS C
     Route: 048
     Dates: start: 20140128, end: 20140501
  2. RIBAVIRIN [Suspect]
     Indication: HEPATITIS C
     Dosage: 1200 DAILY ORAL
     Route: 048
     Dates: start: 20140128, end: 20140501
  3. ASPIRIN [Concomitant]
  4. LISINOPRIL [Concomitant]
  5. METOPROLOL [Concomitant]
  6. OMEPRAZOLE [Concomitant]
  7. SERTRALINE [Concomitant]
  8. SIMVISTATIN [Concomitant]
  9. VENTOLIN [Concomitant]

REACTIONS (4)
  - Chest pain [None]
  - Vertigo [None]
  - Drug screen positive [None]
  - Drug abuse [None]
